FAERS Safety Report 15283003 (Version 1)
Quarter: 2018Q3

REPORT INFORMATION
  Report Type: Spontaneous
  Country: US (occurrence: US)
  Receive Date: 20180816
  Receipt Date: 20180816
  Transmission Date: 20181010
  Serious: Yes (Other)
  Sender: FDA-Public Use
  Company Number: US-ACCORD-069540

PATIENT
  Age: 86 Year
  Sex: Male
  Weight: 80.74 kg

DRUGS (1)
  1. CLONAZEPAM. [Suspect]
     Active Substance: CLONAZEPAM
     Indication: ANXIETY
     Dosage: STRENGTH: 0.5 MG, 0.5MG THREE TIMES A DAY
     Route: 048

REACTIONS (2)
  - Haemoptysis [Unknown]
  - Dysphagia [Unknown]

NARRATIVE: CASE EVENT DATE: 20180618
